FAERS Safety Report 17435100 (Version 2)
Quarter: 2020Q1

REPORT INFORMATION
  Report Type: Report from Study
  Country: US (occurrence: US)
  Receive Date: 20200219
  Receipt Date: 20200305
  Transmission Date: 20200409
  Serious: Yes (Hospitalization)
  Sender: FDA-Public Use
  Company Number: US-ROCHE-2552022

PATIENT
  Age: 78 Year
  Sex: Male
  Weight: 91.62 kg

DRUGS (13)
  1. LISINOPRIL. [Concomitant]
     Active Substance: LISINOPRIL
  2. PRAVASTATIN. [Concomitant]
     Active Substance: PRAVASTATIN
  3. CABOZANTINIB [Suspect]
     Active Substance: CABOZANTINIB
     Indication: METASTATIC NEOPLASM
     Dosage: DATE OF MOST RECENT DOSE OF CABOZANTINIB PRIOR TO THE ONSET OF THE EVENT: 02/FEB/2020
     Route: 048
     Dates: start: 20200114
  4. COREG [Concomitant]
     Active Substance: CARVEDILOL
  5. HUMALOG [Concomitant]
     Active Substance: INSULIN LISPRO
  6. NORVASC [Concomitant]
     Active Substance: AMLODIPINE BESYLATE
  7. INVOKANA [Concomitant]
     Active Substance: CANAGLIFLOZIN
  8. ATEZOLIZUMAB. [Suspect]
     Active Substance: ATEZOLIZUMAB
     Indication: METASTATIC NEOPLASM
     Dosage: DATE OF MOST RECENT DOSE OF ATEZOLIZUMAB PRIOR TO THE ONSET OF THE EVENT: 14/JAN/2020
     Route: 042
     Dates: start: 20200114
  9. ECOTRIN [Concomitant]
     Active Substance: ASPIRIN
  10. TRESIBA [Concomitant]
     Active Substance: INSULIN DEGLUDEC
  11. LASIX [Concomitant]
     Active Substance: FUROSEMIDE
  12. LEVOTHYROXINE. [Concomitant]
     Active Substance: LEVOTHYROXINE
  13. METFORMIN [Concomitant]
     Active Substance: METFORMIN HYDROCHLORIDE
     Route: 065

REACTIONS (3)
  - Pleural effusion [Recovering/Resolving]
  - Dyspnoea [Unknown]
  - Failure to thrive [Not Recovered/Not Resolved]

NARRATIVE: CASE EVENT DATE: 20200203
